FAERS Safety Report 5042594-1 (Version None)
Quarter: 2006Q2

REPORT INFORMATION
  Report Type: 
  Country: None (occurrence: None)
  Receive Date: 20060627
  Receipt Date: 20060613
  Transmission Date: 20061013
  Serious: Yes (Other)
  Sender: FDA-Public Use
  Company Number: 2006078263

PATIENT

DRUGS (1)
  1. CABERGOLINE [Suspect]
     Indication: ILL-DEFINED DISORDER
     Dosage: 0.5 MG ORAL
     Route: 048

REACTIONS (3)
  - ANOREXIA [None]
  - GASTROINTESTINAL DISORDER [None]
  - HYPOKINESIA [None]
